FAERS Safety Report 23804533 (Version 1)
Quarter: 2024Q2

REPORT INFORMATION
  Report Type: Report from Study
  Country: CN (occurrence: CN)
  Receive Date: 20240501
  Receipt Date: 20240501
  Transmission Date: 20240716
  Serious: Yes (Other)
  Sender: FDA-Public Use
  Company Number: CN-PFIZER INC-PV202400057195

PATIENT
  Age: 50 Month
  Sex: Female

DRUGS (4)
  1. METHYLPREDNISOLONE SODIUM SUCCINATE [Suspect]
     Active Substance: METHYLPREDNISOLONE SODIUM SUCCINATE
     Indication: Haemophagocytic lymphohistiocytosis
     Dosage: UNK UNK, CYCLIC
  2. ASPARAGINASE [Suspect]
     Active Substance: ASPARAGINASE
     Indication: Haemophagocytic lymphohistiocytosis
     Dosage: UNK UNK, CYCLIC
  3. DOXORUBICIN HYDROCHLORIDE [Suspect]
     Active Substance: DOXORUBICIN HYDROCHLORIDE
     Indication: Haemophagocytic lymphohistiocytosis
     Dosage: UNK UNK, CYCLIC
  4. ETOPOSIDE [Suspect]
     Active Substance: ETOPOSIDE
     Indication: Haemophagocytic lymphohistiocytosis
     Dosage: UNK UNK, CYCLIC

REACTIONS (2)
  - Myelosuppression [Recovering/Resolving]
  - Herpes zoster [Recovered/Resolved]
